FAERS Safety Report 4605770-5 (Version None)
Quarter: 2005Q1

REPORT INFORMATION
  Report Type: 
  Country: None (occurrence: None)
  Receive Date: 20050115
  Receipt Date: 20040106
  Transmission Date: 20050727
  Serious: Yes (Other)
  Sender: FDA-Public Use
  Company Number: A03200400025

PATIENT
  Age: 39 Year
  Sex: Female

DRUGS (1)
  1. AMBIEN [Suspect]
     Indication: INSOMNIA
     Dates: start: 20000101, end: 20030101

REACTIONS (3)
  - AMNESIA [None]
  - HALLUCINATION [None]
  - SLEEP WALKING [None]
